FAERS Safety Report 17588589 (Version 1)
Quarter: 2020Q1

REPORT INFORMATION
  Report Type: Spontaneous
  Country: CN (occurrence: CN)
  Receive Date: 20200327
  Receipt Date: 20200327
  Transmission Date: 20200409
  Serious: Yes (Hospitalization)
  Sender: FDA-Public Use
  Company Number: CN-BAXTER-2020BAX006612

PATIENT
  Age: 62 Year
  Sex: Female
  Weight: 65 kg

DRUGS (12)
  1. 0.9% SODIUM CHLORIDE INJECTION [Suspect]
     Active Substance: SODIUM CHLORIDE
     Dosage: DOSE RE-INTRODUCED, VINDESINE SULFATE + 0.9% SODIUM CHLORIDE (NS)
     Route: 042
  2. 0.9% SODIUM CHLORIDE INJECTION [Suspect]
     Active Substance: SODIUM CHLORIDE
     Dosage: DAY 1, VINDESINE SULFATE 3 MG + 0.9% SODIUM CHLORIDE (NS)
     Route: 042
     Dates: start: 20190923, end: 20190923
  3. STERILE WATER FOR INJECTION [Suspect]
     Active Substance: WATER
     Dosage: DOSE RE-INTRODUCED, EPIRUBICIN HYDROCHLORIDE + WATER FOR INJECTION
     Route: 042
  4. VINDESINE SULFATE [Suspect]
     Active Substance: VINDESINE SULFATE
     Dosage: DOSE RE-INTRODUCED, VINDESINE SULFATE + 0.9% SODIUM CHLORIDE (NS)
     Route: 042
  5. ENDOXAN [Suspect]
     Active Substance: CYCLOPHOSPHAMIDE
     Indication: LYMPHOMA
     Dosage: DAY 1, CYCLOPHOSPHAMIDE + 0.9% SODIUM CHLORIDE (NS) 80 ML
     Route: 042
     Dates: start: 20190923, end: 20190923
  6. STERILE WATER FOR INJECTION [Suspect]
     Active Substance: WATER
     Indication: MEDICATION DILUTION
     Dosage: DAYS 1-2, EPIRUBICIN HYDROCHLORIDE 45 MG + WATER FOR INJECTION
     Route: 042
     Dates: start: 20190923, end: 20190924
  7. EPIRUBICIN HYDROCHLORIDE. [Suspect]
     Active Substance: EPIRUBICIN HYDROCHLORIDE
     Indication: LYMPHOMA
     Dosage: DAYS 1-2, EPIRUBICIN HYDROCHLORIDE + WATER FOR INJECTION 40ML
     Route: 042
     Dates: start: 20190923, end: 20190924
  8. VINDESINE SULFATE [Suspect]
     Active Substance: VINDESINE SULFATE
     Indication: LYMPHOMA
     Dosage: DAY 1, VINDESINE SULFATE + 0.9% SODIUM CHLORIDE (NS) 40 ML
     Route: 042
     Dates: start: 20190923, end: 20190923
  9. 0.9% SODIUM CHLORIDE INJECTION [Suspect]
     Active Substance: SODIUM CHLORIDE
     Indication: MEDICATION DILUTION
     Dosage: DAY 1, CYCLOPHOSPHAMIDE 1.1 G + 0.9% SODIUM CHLORIDE (NS)
     Route: 042
     Dates: start: 20190923, end: 20190923
  10. ENDOXAN [Suspect]
     Active Substance: CYCLOPHOSPHAMIDE
     Dosage: DOSE RE-INTRODUCED, CYCLOPHOSPHAMIDE + 0.9% SODIUM CHLORIDE (NS)
     Route: 042
  11. 0.9% SODIUM CHLORIDE INJECTION [Suspect]
     Active Substance: SODIUM CHLORIDE
     Dosage: DOSE RE-INTRODUCED, CYCLOPHOSPHAMIDE + 0.9% SODIUM CHLORIDE (NS)
     Route: 042
  12. EPIRUBICIN HYDROCHLORIDE. [Suspect]
     Active Substance: EPIRUBICIN HYDROCHLORIDE
     Dosage: DOSE RE-INTRODUCED, EPIRUBICIN HYDROCHLORIDE + WATER FOR INJECTION
     Route: 042

REACTIONS (1)
  - Bone marrow failure [Recovering/Resolving]

NARRATIVE: CASE EVENT DATE: 20191002
